FAERS Safety Report 10374869 (Version 1)
Quarter: 2014Q1

REPORT INFORMATION
  Report Type: Spontaneous
  Country: US (occurrence: None)
  Receive Date: 20140306
  Receipt Date: 20140306
  Transmission Date: 20141002
  Serious: Yes (Disabling)
  Sender: FDA-Public Use
  Company Number: 163-21880-13041020

PATIENT
  Age: 63 Year
  Sex: Female

DRUGS (4)
  1. REVLIMID (LENALIDOMIDE) (25 MILLIGRAM, CAPSULES) [Suspect]
     Indication: PLASMA CELL MYELOMA
     Route: 048
     Dates: start: 20130124
  2. VELCADE (BORTEZOMIB) [Suspect]
     Indication: PLASMA CELL MYELOMA
     Dosage: NOT PROVIDED, SC?66, 188
     Route: 058
     Dates: start: 20121227
  3. RELAFEN (NABUMETONE) [Concomitant]
  4. DEXAMETHASONE [Concomitant]

REACTIONS (1)
  - Pain in extremity [None]
